FAERS Safety Report 14493731 (Version 1)
Quarter: 2018Q1

REPORT INFORMATION
  Report Type: Spontaneous
  Country: US (occurrence: US)
  Receive Date: 20180205
  Receipt Date: 20180205
  Transmission Date: 20180509
  Serious: Yes (Life-Threatening, Hospitalization, Disabling)
  Sender: FDA-Public Use
  Company Number: None

PATIENT
  Age: 62 Year
  Sex: Male
  Weight: 74.25 kg

DRUGS (8)
  1. B VITAMINS [Concomitant]
     Active Substance: CYANOCOBALAMIN\DEXPANTHENOL\NIACINAMIDE\PYRIDOXINE HYDROCHLORIDE\RIBOFLAVIN 5^-PHOSPHATE SODIUM\THIAMINE HYDROCHLORIDE\VITAMIN B COMPLEX
  2. FISH OIL [Concomitant]
     Active Substance: FISH OIL
  3. NEURONTIN [Suspect]
     Active Substance: GABAPENTIN
     Indication: NERVE INJURY
     Dosage: ?          QUANTITY:1 CAPSULE(S);?
     Route: 048
     Dates: start: 20170307, end: 20171207
  4. MULTI VITAMIN [Concomitant]
     Active Substance: VITAMINS
  5. AMBIEN [Concomitant]
     Active Substance: ZOLPIDEM TARTRATE
  6. MAGNESIUM [Concomitant]
     Active Substance: MAGNESIUM
  7. KLONOPIN [Concomitant]
     Active Substance: CLONAZEPAM
  8. COQ10 [Concomitant]
     Active Substance: UBIDECARENONE

REACTIONS (7)
  - Skin exfoliation [None]
  - Insomnia [None]
  - Depression [None]
  - Hyperhidrosis [None]
  - Respiratory disorder [None]
  - Burning sensation [None]
  - Anxiety [None]

NARRATIVE: CASE EVENT DATE: 20171207
